FAERS Safety Report 21936028 (Version 1)
Quarter: 2023Q1

REPORT INFORMATION
  Report Type: Report from Study
  Country: US (occurrence: US)
  Receive Date: 20230201
  Receipt Date: 20230201
  Transmission Date: 20230417
  Serious: No
  Sender: FDA-Public Use
  Company Number: US-INCYTE CORPORATION-2020IN005102

PATIENT

DRUGS (1)
  1. PEMIGATINIB [Suspect]
     Active Substance: PEMIGATINIB
     Indication: Cholangiocarcinoma
     Dosage: 13.5 MILLIGRAM, QPM WITH FOOD
     Route: 048
     Dates: start: 20200523

REACTIONS (8)
  - Defaecation urgency [Unknown]
  - Hepatic enzyme increased [Unknown]
  - Erythema nodosum [Unknown]
  - Decreased appetite [Unknown]
  - Abdominal pain upper [Unknown]
  - Dry mouth [Unknown]
  - Hyperphosphataemia [Unknown]
  - Dry eye [Unknown]
